FAERS Safety Report 9574763 (Version 1)
Quarter: 2013Q4

REPORT INFORMATION
  Report Type: Spontaneous
  Country: US (occurrence: US)
  Receive Date: 20131001
  Receipt Date: 20131001
  Transmission Date: 20140711
  Serious: Yes (Hospitalization)
  Sender: FDA-Public Use
  Company Number: US-JNJFOC-20130915837

PATIENT
  Age: 57 Year
  Sex: Female

DRUGS (1)
  1. INVEGA SUSTENNA [Suspect]
     Indication: SCHIZOPHRENIA
     Dosage: SECOND INITIATION DOSE. FREQUENCY: ONCE.
     Route: 030
     Dates: start: 20130726

REACTIONS (3)
  - Schizophrenia [Unknown]
  - Creatinine renal clearance decreased [Unknown]
  - Drug dose omission [Unknown]
